FAERS Safety Report 18997429 (Version 3)
Quarter: 2022Q1

REPORT INFORMATION
  Report Type: Spontaneous
  Country: US (occurrence: US)
  Receive Date: 20210311
  Receipt Date: 20220120
  Transmission Date: 20220423
  Serious: Yes (Death)
  Sender: FDA-Public Use
  Company Number: US-WEST THERAPEUTIC DEVELOPMENT-2021WTD00005

PATIENT
  Sex: Female
  Weight: 70.748 kg

DRUGS (2)
  1. SUBSYS [Suspect]
     Active Substance: FENTANYL
     Indication: Breakthrough pain
     Dosage: 1 SPRAY EVERY 4 HOURS AS NEEDED
     Dates: start: 201707
  2. FENTANYL [Concomitant]
     Active Substance: FENTANYL

REACTIONS (1)
  - Cervix carcinoma [Fatal]
